FAERS Safety Report 13609196 (Version 2)
Quarter: 2017Q3

REPORT INFORMATION
  Report Type: Spontaneous
  Country: US (occurrence: US)
  Receive Date: 20170602
  Receipt Date: 20170802
  Transmission Date: 20171127
  Serious: No
  Sender: FDA-Public Use
  Company Number: US-SHIRE-US201712310

PATIENT
  Age: 52 Year
  Sex: Female
  Weight: 68.27 kg

DRUGS (1)
  1. XIIDRA [Suspect]
     Active Substance: LIFITEGRAST
     Indication: DRY EYE
     Dosage: 1 GTT (BOTH EYES), 2X/DAY:BID
     Route: 047
     Dates: start: 201610, end: 201705

REACTIONS (2)
  - Product quality issue [Unknown]
  - Instillation site pain [Recovered/Resolved]

NARRATIVE: CASE EVENT DATE: 20170520
